FAERS Safety Report 9551828 (Version 1)
Quarter: 2013Q3

REPORT INFORMATION
  Report Type: Spontaneous
  Country: US (occurrence: None)
  Receive Date: 20130724
  Receipt Date: 20130724
  Transmission Date: 20140515
  Serious: Yes (Other)
  Sender: FDA-Public Use
  Company Number: PHEH2013US001593

PATIENT
  Age: 68 Year
  Sex: Male

DRUGS (7)
  1. DIOVAN HCT (VALSARTAN, HYDROCHLOROTHIAZIDE) UNKNOWN [Suspect]
     Indication: BLOOD PRESSURE
     Dosage: 320/UNKNOWN MG, DAILY
     Dates: end: 20130109
  2. CLONIDINE (CLONIDINE) [Concomitant]
  3. SIMVASTATIN (SIMVASTATIN) [Concomitant]
  4. FUROSEMIDE (FUROSEMIDE) [Concomitant]
  5. OMEPAZOLE (OMEPRAZOLE) [Concomitant]
  6. AMLODIPINE (AMLODIPINE) [Concomitant]
  7. KLOR-CON (POTASSIUM CHLORIDE) [Concomitant]

REACTIONS (1)
  - Renal disorder [None]
